FAERS Safety Report 16828474 (Version 1)
Quarter: 2019Q3

REPORT INFORMATION
  Report Type: Spontaneous
  Country: US (occurrence: US)
  Receive Date: 20190919
  Receipt Date: 20190919
  Transmission Date: 20191005
  Serious: No
  Sender: FDA-Public Use
  Company Number: US-SA-2019SA257969

PATIENT
  Age: 46 Year
  Sex: Female

DRUGS (5)
  1. PAROXETINE. [Concomitant]
     Active Substance: PAROXETINE
  2. AMITRIPTYLINE [Concomitant]
     Active Substance: AMITRIPTYLINE
  3. DUPIXENT [Suspect]
     Active Substance: DUPILUMAB
     Dosage: 600 MG, 1X
     Route: 058
     Dates: start: 20190830, end: 20190830
  4. MONTELUKAST [Concomitant]
     Active Substance: MONTELUKAST SODIUM
  5. FLUTICASONE. [Concomitant]
     Active Substance: FLUTICASONE

REACTIONS (6)
  - Dry skin [Not Recovered/Not Resolved]
  - Headache [Recovered/Resolved]
  - Rash erythematous [Not Recovered/Not Resolved]
  - Disease progression [Not Recovered/Not Resolved]
  - Pruritus [Not Recovered/Not Resolved]
  - Skin irritation [Not Recovered/Not Resolved]

NARRATIVE: CASE EVENT DATE: 20190902
